FAERS Safety Report 22880199 (Version 2)
Quarter: 2023Q4

REPORT INFORMATION
  Report Type: Report from Study
  Country: ES (occurrence: ES)
  Receive Date: 20230829
  Receipt Date: 20231129
  Transmission Date: 20240110
  Serious: Yes (Hospitalization, Other)
  Sender: FDA-Public Use
  Company Number: ES-AKCEA THERAPEUTICS, INC.-2023IS001130

PATIENT
  Age: 81 Year
  Sex: Female

DRUGS (21)
  1. MIRTAZAPINE [Suspect]
     Active Substance: MIRTAZAPINE
     Indication: Product used for unknown indication
     Dosage: 15 MILLIGRAM
     Route: 065
  2. GABAPENTIN [Suspect]
     Active Substance: GABAPENTIN
     Indication: Product used for unknown indication
     Dosage: 300 MILLIGRAM, QD
     Route: 048
  3. GABAPENTIN [Suspect]
     Active Substance: GABAPENTIN
     Dosage: 1500 MILLIGRAM, QD
     Route: 048
  4. TEGSEDI [Suspect]
     Active Substance: INOTERSEN SODIUM
     Indication: Hereditary neuropathic amyloidosis
     Dosage: 284 MILLIGRAM, QW
     Route: 058
  5. TEGSEDI [Suspect]
     Active Substance: INOTERSEN SODIUM
     Dosage: 284 MILLIGRAM, QW
     Route: 058
  6. TEGSEDI [Suspect]
     Active Substance: INOTERSEN SODIUM
     Dosage: 284 MILLIGRAM, QW
     Route: 058
     Dates: start: 20210407
  7. TEGSEDI [Suspect]
     Active Substance: INOTERSEN SODIUM
     Dosage: 284 MILLIGRAM, Q2W (FORTNIGHTLY)
     Route: 058
     Dates: start: 20220407
  8. Cetirex [Concomitant]
     Indication: Product used for unknown indication
     Dosage: 10 MILLIGRAM, 1 TABLET THE DAY OF ADMINISTRATION OF TEGSEDI
     Route: 065
  9. ACETAMINOPHEN [Concomitant]
     Active Substance: ACETAMINOPHEN
     Indication: Product used for unknown indication
     Dosage: 1 GRAM PER GRAM, PRN
     Route: 048
  10. CITALOPRAM [Concomitant]
     Active Substance: CITALOPRAM HYDROBROMIDE
     Indication: Product used for unknown indication
     Dosage: 10 MILLIGRAM, QD
     Route: 048
  11. OMEPRAZOLE [Concomitant]
     Active Substance: OMEPRAZOLE
     Indication: Product used for unknown indication
     Dosage: 20 MILLIGRAM
     Route: 065
  12. OXYMETAZOLINE [Concomitant]
     Active Substance: OXYMETAZOLINE
     Indication: Product used for unknown indication
     Dosage: UNK
     Route: 065
  13. VIMPAT [Concomitant]
     Active Substance: LACOSAMIDE
     Indication: Product used for unknown indication
     Dosage: 50 MILLIGRAM, QD
     Route: 048
  14. ALLOPURINOL [Concomitant]
     Active Substance: ALLOPURINOL
     Indication: Product used for unknown indication
     Dosage: 100 MILLIGRAM, QD
     Route: 048
  15. EPLERENONE [Concomitant]
     Active Substance: EPLERENONE
     Indication: Product used for unknown indication
     Dosage: 25 MILLIGRAM, QD
     Route: 048
  16. EPLERENONE [Concomitant]
     Active Substance: EPLERENONE
     Dosage: 50 MILLIGRAM
     Route: 065
  17. EPLERENONE [Concomitant]
     Active Substance: EPLERENONE
     Dosage: UNK UNK, QW
     Route: 048
  18. CALCIUM CARBONATE\CHOLECALCIFEROL [Concomitant]
     Active Substance: CALCIUM CARBONATE\CHOLECALCIFEROL
     Indication: Product used for unknown indication
     Dosage: 1 DOSAGE FORM, QD (1000 MG/880U, QD)
     Route: 065
  19. FUROSEMIDE [Concomitant]
     Active Substance: FUROSEMIDE
     Indication: Product used for unknown indication
     Dosage: 40 MILLIGRAM, QD
     Route: 048
  20. FUROSEMIDE [Concomitant]
     Active Substance: FUROSEMIDE
     Dosage: 100 MILLIGRAM, QD
     Route: 065
  21. DAPAGLIFLOZIN [Concomitant]
     Active Substance: DAPAGLIFLOZIN
     Indication: Product used for unknown indication
     Dosage: 10 MILLIGRAM, QD
     Route: 065

REACTIONS (91)
  - Brain contusion [Recovered/Resolved]
  - Drug dependence [Unknown]
  - Dyspnoea [Recovered/Resolved]
  - Cardiac failure congestive [Recovering/Resolving]
  - Bone pain [Unknown]
  - Swelling face [Recovering/Resolving]
  - Bacterial test positive [Recovered/Resolved]
  - Mobility decreased [Not Recovered/Not Resolved]
  - White blood cells urine positive [Not Recovered/Not Resolved]
  - Fine motor skill dysfunction [Not Recovered/Not Resolved]
  - Arthropathy [Recovered/Resolved]
  - Abdominal pain [Recovered/Resolved]
  - Monocyte count increased [Recovered/Resolved]
  - Neck pain [Recovered/Resolved]
  - Nasal congestion [Unknown]
  - Muscle spasticity [Not Recovered/Not Resolved]
  - Walking aid user [Unknown]
  - Urinary sediment present [Recovered/Resolved]
  - Asthenia [Not Recovered/Not Resolved]
  - Vitamin A decreased [Recovered/Resolved]
  - Blood creatinine increased [Not Recovered/Not Resolved]
  - Blood bilirubin unconjugated decreased [Recovered/Resolved]
  - Sensory loss [Not Recovered/Not Resolved]
  - Malaise [Recovered/Resolved]
  - Blood uric acid increased [Recovered/Resolved]
  - Abdominal distension [Unknown]
  - Blood chloride decreased [Not Recovered/Not Resolved]
  - Microalbuminuria [Unknown]
  - Chills [Recovered/Resolved]
  - Abdominal discomfort [Not Recovered/Not Resolved]
  - Cough [Unknown]
  - Calcium deficiency [Recovered/Resolved]
  - Haematocrit decreased [Not Recovered/Not Resolved]
  - Blood urea increased [Not Recovered/Not Resolved]
  - Low density lipoprotein increased [Recovered/Resolved]
  - Loss of personal independence in daily activities [Not Recovered/Not Resolved]
  - Oropharyngeal discomfort [Recovered/Resolved]
  - Fall [Unknown]
  - Haematoma [Recovered/Resolved]
  - Influenza like illness [Recovered/Resolved]
  - Transferrin decreased [Not Recovered/Not Resolved]
  - Spondylitis [Unknown]
  - Temperature regulation disorder [Recovered/Resolved]
  - Creatinine urine decreased [Unknown]
  - Condition aggravated [Recovered/Resolved]
  - Lymphocyte count increased [Recovered/Resolved]
  - Blood thyroid stimulating hormone increased [Recovered/Resolved]
  - Urine albumin/creatinine ratio abnormal [Unknown]
  - Pain [Recovered/Resolved]
  - Nasopharyngitis [Not Recovered/Not Resolved]
  - Contusion [Recovered/Resolved]
  - Specific gravity urine decreased [Unknown]
  - Red blood cell sedimentation rate increased [Not Recovered/Not Resolved]
  - Dyspnoea exertional [Not Recovered/Not Resolved]
  - Fluid retention [Unknown]
  - Glomerular filtration rate decreased [Not Recovered/Not Resolved]
  - Blood iron decreased [Not Recovered/Not Resolved]
  - Balance disorder [Unknown]
  - Blood cholesterol increased [Recovered/Resolved]
  - Hypoaesthesia [Not Recovered/Not Resolved]
  - Blood potassium decreased [Recovered/Resolved]
  - Nitrite urine present [Recovered/Resolved]
  - Pyrexia [Unknown]
  - Gait disturbance [Recovering/Resolving]
  - Decreased appetite [Recovered/Resolved]
  - Discouragement [Recovered/Resolved]
  - Haemoglobin decreased [Not Recovered/Not Resolved]
  - Swelling [Recovered/Resolved]
  - Head injury [Recovered/Resolved]
  - Muscle spasms [Not Recovered/Not Resolved]
  - Lethargy [Recovered/Resolved]
  - Red blood cell count decreased [Not Recovered/Not Resolved]
  - Neutrophil count decreased [Unknown]
  - Blood sodium decreased [Not Recovered/Not Resolved]
  - Eosinophil count increased [Not Recovered/Not Resolved]
  - White blood cell count decreased [Not Recovered/Not Resolved]
  - Insomnia [Not Recovered/Not Resolved]
  - Arthralgia [Unknown]
  - Peripheral swelling [Recovering/Resolving]
  - Dizziness [Recovered/Resolved]
  - Tremor [Recovered/Resolved]
  - Illness [Unknown]
  - Localised oedema [Recovered/Resolved]
  - Mouth swelling [Recovered/Resolved]
  - Gamma-glutamyltransferase increased [Not Recovered/Not Resolved]
  - Aspartate aminotransferase increased [Recovered/Resolved]
  - Blood alkaline phosphatase increased [Unknown]
  - Fatigue [Not Recovered/Not Resolved]
  - Platelet count decreased [Not Recovered/Not Resolved]
  - Oedema peripheral [Recovering/Resolving]
  - Constipation [Recovered/Resolved]

NARRATIVE: CASE EVENT DATE: 20220907
